FAERS Safety Report 14819435 (Version 1)
Quarter: 2018Q2

REPORT INFORMATION
  Report Type: Report from Study
  Country: None (occurrence: BR)
  Receive Date: 20180427
  Receipt Date: 20180427
  Transmission Date: 20180711
  Serious: Yes (Hospitalization, Other)
  Sender: FDA-Public Use
  Company Number: BR-ABBVIE-18K-020-2229636-00

PATIENT
  Age: 47 Year
  Sex: Male
  Weight: 64 kg

DRUGS (7)
  1. HUMIRA [Suspect]
     Active Substance: ADALIMUMAB
     Dosage: LOADING DOSE. WEEK 1
     Route: 058
     Dates: start: 201712, end: 201712
  2. AZATHIOPRINE. [Concomitant]
     Active Substance: AZATHIOPRINE
     Indication: CROHN^S DISEASE
  3. MESALAZINE [Concomitant]
     Active Substance: MESALAMINE
     Indication: CROHN^S DISEASE
  4. HUMIRA [Suspect]
     Active Substance: ADALIMUMAB
     Indication: CROHN^S DISEASE
     Dosage: LOADING DOSE. WEEK ZERO
     Route: 058
     Dates: start: 20171130, end: 20171130
  5. HUMIRA [Suspect]
     Active Substance: ADALIMUMAB
     Route: 058
  6. OMEPRAZOLE. [Concomitant]
     Active Substance: OMEPRAZOLE
     Indication: GASTRIC DISORDER
  7. PREDNISONE. [Concomitant]
     Active Substance: PREDNISONE
     Indication: CROHN^S DISEASE

REACTIONS (19)
  - Dysuria [Recovering/Resolving]
  - Dehydration [Recovering/Resolving]
  - Gastric ulcer [Recovered/Resolved]
  - Haematochezia [Recovering/Resolving]
  - Gastrooesophageal reflux disease [Recovered/Resolved]
  - Dehydration [Recovered/Resolved]
  - Immunodeficiency [Recovering/Resolving]
  - Gastritis [Recovered/Resolved]
  - Feeling hot [Recovering/Resolving]
  - Hiatus hernia [Recovered/Resolved]
  - Injection site discomfort [Recovered/Resolved]
  - Headache [Recovering/Resolving]
  - Tuberculosis [Recovering/Resolving]
  - Crohn^s disease [Recovering/Resolving]
  - Food poisoning [Unknown]
  - Lung disorder [Recovering/Resolving]
  - Pain in extremity [Recovering/Resolving]
  - Viral infection [Recovering/Resolving]
  - Anaemia [Recovering/Resolving]

NARRATIVE: CASE EVENT DATE: 201712
